FAERS Safety Report 6433460-5 (Version None)
Quarter: 2009Q4

REPORT INFORMATION
  Report Type: 
  Country: None (occurrence: None)
  Receive Date: 20091106
  Receipt Date: 20091106
  Transmission Date: 20100525
  Serious: Yes (Other)
  Sender: FDA-Public Use
  Company Number: None

PATIENT
  Age: 34 Year
  Sex: Female
  Weight: 128.368 kg

DRUGS (2)
  1. LUPRON [Suspect]
     Indication: CYST
     Dosage: 11.25 EVERY THREE MONTHS IM
     Route: 030
     Dates: start: 20070215, end: 20070830
  2. LUPRON [Suspect]
     Indication: CYST
     Dosage: 11.25 EVERY THREE MONTHS IM
     Route: 030
     Dates: start: 20070514, end: 20080428

REACTIONS (7)
  - AMNESIA [None]
  - APHASIA [None]
  - BLINDNESS UNILATERAL [None]
  - BONE PAIN [None]
  - MEMORY IMPAIRMENT [None]
  - MIGRAINE [None]
  - SYSTEMIC LUPUS ERYTHEMATOSUS [None]
